FAERS Safety Report 20559199 (Version 2)
Quarter: 2022Q1

REPORT INFORMATION
  Report Type: Spontaneous
  Country: US (occurrence: US)
  Receive Date: 20220307
  Receipt Date: 20220315
  Transmission Date: 20220423
  Serious: Yes (Life-Threatening, Hospitalization, Other)
  Sender: FDA-Public Use
  Company Number: US-drreddys-SPO/USA/22/0147328

PATIENT
  Age: 25 Year
  Sex: Male

DRUGS (1)
  1. PROPOFOL [Suspect]
     Active Substance: PROPOFOL
     Indication: Sedation

REACTIONS (4)
  - Respiratory failure [Recovered/Resolved]
  - Complication associated with device [Recovered/Resolved]
  - Hypertriglyceridaemia [Recovered/Resolved]
  - Hypoxia [Recovered/Resolved]
